FAERS Safety Report 6606459-3 (Version None)
Quarter: 2010Q1

REPORT INFORMATION
  Report Type: 
  Country: None (occurrence: None)
  Receive Date: 20100226
  Receipt Date: 20100215
  Transmission Date: 20100710
  Serious: Yes (Hospitalization)
  Sender: FDA-Public Use
  Company Number: PHHY2009CL15612

PATIENT
  Age: 74 Year
  Sex: Female

DRUGS (6)
  1. TAREG D [Suspect]
     Indication: HYPERTENSION
     Dosage: 1 DF, QD
     Route: 048
  2. TAREG D [Suspect]
     Indication: FLUID RETENTION
  3. EUTHYROX [Concomitant]
     Dosage: 1 DF, QD
  4. SERTRALINA [Concomitant]
     Dosage: 1 DF, QD
  5. CRESTOR [Concomitant]
     Dosage: 1 DF, QD
  6. GLUCOFAGE [Concomitant]
     Dosage: 1 DF, QD

REACTIONS (2)
  - KNEE OPERATION [None]
  - MENISCUS OPERATION [None]
